FAERS Safety Report 8185516-7 (Version None)
Quarter: 2012Q1

REPORT INFORMATION
  Report Type: 
  Country: None (occurrence: None)
  Receive Date: 20120305
  Receipt Date: 20120123
  Transmission Date: 20120608
  Serious: Yes (Hospitalization)
  Sender: FDA-Public Use
  Company Number: FR-PFIZER INC-K201000588

PATIENT
  Age: 82 Year
  Sex: Female

DRUGS (13)
  1. FENOFIBRATE [Concomitant]
     Dosage: UNK
     Dates: start: 20091120, end: 20100311
  2. CALCIPARINE [Concomitant]
     Dosage: UNK
     Dates: start: 20091201
  3. ACETAMINOPHEN [Concomitant]
     Dosage: UNK
     Dates: start: 20091201
  4. ZOLPIDEM [Concomitant]
     Dosage: UNK
     Dates: start: 20091201
  5. RAMIPRIL [Suspect]
     Dosage: 1.25 MG, UNK
     Route: 048
     Dates: start: 20091210, end: 20100317
  6. ASPEGIC 1000 [Concomitant]
     Dosage: UNK
     Dates: start: 20091120
  7. OFLOXACIN [Suspect]
     Indication: ARTHRITIS BACTERIAL
     Dosage: UNK
     Route: 048
     Dates: start: 20091120, end: 20100312
  8. ESOMEPRAZOLE SODIUM [Suspect]
     Dosage: UNK
     Route: 048
     Dates: start: 20091120, end: 20100311
  9. SPASFON [Concomitant]
     Dosage: UNK
     Dates: start: 20091201
  10. RIFADIN [Suspect]
     Indication: ARTHRITIS BACTERIAL
     Dosage: UNK
     Route: 048
     Dates: start: 20091120, end: 20100312
  11. FLUCONAZOLE [Suspect]
     Dosage: UNK
     Route: 048
     Dates: start: 20091211, end: 20100311
  12. VASTAREL [Concomitant]
     Dosage: UNK
     Dates: start: 20091120, end: 20100311
  13. LEVOTHYROXINE SODIUM [Concomitant]
     Dosage: UNK

REACTIONS (4)
  - NEUTROPENIA [None]
  - INFLAMMATION [None]
  - LEUKOPENIA [None]
  - ANAEMIA [None]
